FAERS Safety Report 18422065 (Version 1)
Quarter: 2020Q4

REPORT INFORMATION
  Report Type: Spontaneous
  Country: DE (occurrence: DE)
  Receive Date: 20201023
  Receipt Date: 20201023
  Transmission Date: 20210114
  Serious: Yes (Other)
  Sender: FDA-Public Use
  Company Number: DE-GW PHARMA-202010DEGW03610

PATIENT

DRUGS (11)
  1. EPIDIOLEX [Suspect]
     Active Substance: CANNABIDIOL
     Dosage: 10 MILLIGRAM/KILOGRAM, QD
     Route: 048
  2. EPIDIOLEX [Suspect]
     Active Substance: CANNABIDIOL
     Dosage: 20 MG/KG/DAY, 200 MILLIGRAM, BID (DOSE INCREASED DUE TO SEIZURE)
     Route: 048
  3. VALPROIC ACID. [Suspect]
     Active Substance: VALPROIC ACID
     Dosage: 750 MILLIGRAM, QD (250-0-500 MG), DOSE REDUCED
     Route: 065
  4. CLOBAZAM. [Suspect]
     Active Substance: CLOBAZAM
     Indication: LENNOX-GASTAUT SYNDROME
     Dosage: 10 MILLIGRAM, BID (10-0-10 MG)
     Route: 065
  5. EPIDIOLEX [Suspect]
     Active Substance: CANNABIDIOL
     Indication: LENNOX-GASTAUT SYNDROME
     Dosage: 5 MILLIGRAM/KILOGRAM, QD
     Route: 048
  6. ETHOSUXIMIDE. [Suspect]
     Active Substance: ETHOSUXIMIDE
     Indication: LENNOX-GASTAUT SYNDROME
     Dosage: 750 MILLIGRAM, QD (250-0-500 MG)
     Route: 065
  7. BROMIDES [Concomitant]
     Active Substance: UNSPECIFIED INGREDIENT
     Indication: LENNOX-GASTAUT SYNDROME
     Dosage: 850 MILLIGRAM, BID (850-0-850 MG)
     Route: 065
  8. EPIDIOLEX [Suspect]
     Active Substance: CANNABIDIOL
     Dosage: 100 MILLIGRAM, BID (100-0-100 MG)
     Route: 048
  9. CLOBAZAM. [Suspect]
     Active Substance: CLOBAZAM
     Dosage: 15 MILLIGRAM, QD (10-0-5 MG), DOSE REDUCED
     Route: 065
  10. VALPROIC ACID. [Suspect]
     Active Substance: VALPROIC ACID
     Indication: LENNOX-GASTAUT SYNDROME
     Dosage: 500 MILLIGRAM, BID (500-0-500 MG)
     Route: 065
  11. VALPROIC ACID. [Suspect]
     Active Substance: VALPROIC ACID
     Dosage: 250 MILLIGRAM, BID
     Route: 065

REACTIONS (4)
  - Seizure [Recovered/Resolved]
  - Aggression [Recovered/Resolved]
  - Sleep disorder [Recovered/Resolved]
  - Hepatic enzyme increased [Recovered/Resolved]
